FAERS Safety Report 8532555-X (Version None)
Quarter: 2012Q3

REPORT INFORMATION
  Report Type: 
  Country: None (occurrence: None)
  Receive Date: 20120724
  Receipt Date: 20120720
  Transmission Date: 20120928
  Serious: No
  Sender: FDA-Public Use
  Company Number: US-PFIZER INC-2012176243

PATIENT
  Sex: Female
  Weight: 90 kg

DRUGS (1)
  1. PRISTIQ [Suspect]
     Indication: DEPRESSION
     Dosage: 100 MG, 1X/DAY
     Route: 048
     Dates: start: 20100101

REACTIONS (6)
  - BLOOD CHOLESTEROL INCREASED [None]
  - HEADACHE [None]
  - DIARRHOEA [None]
  - VITAMIN D DECREASED [None]
  - MALAISE [None]
  - NAUSEA [None]
